FAERS Safety Report 17980906 (Version 1)
Quarter: 2020Q3

REPORT INFORMATION
  Report Type: Spontaneous
  Country: SK (occurrence: SK)
  Receive Date: 20200704
  Receipt Date: 20200704
  Transmission Date: 20201103
  Serious: Yes (Hospitalization)
  Sender: FDA-Public Use
  Company Number: SK-ROCHE-1551230

PATIENT
  Age: 61 Year
  Sex: Female

DRUGS (9)
  1. RIBAVIRIN. [Suspect]
     Active Substance: RIBAVIRIN
     Indication: HEPATITIS C
     Dosage: DURING 48 WEEKS
     Route: 065
     Dates: start: 200412
  2. RIBAVIRIN. [Suspect]
     Active Substance: RIBAVIRIN
     Route: 065
     Dates: start: 201208
  3. BOCEPREVIR [Suspect]
     Active Substance: BOCEPREVIR
     Indication: HEPATITIS C
     Route: 065
     Dates: start: 201208
  4. INTERFERON ALFA?2A [Suspect]
     Active Substance: INTERFERON ALFA-2A
     Indication: CHRONIC HEPATITIS C
     Route: 065
     Dates: start: 200412
  5. PEGINTERFERON ALFA?2A. [Suspect]
     Active Substance: PEGINTERFERON ALFA-2A
     Route: 065
     Dates: start: 201208
  6. RIBAVIRIN. [Suspect]
     Active Substance: RIBAVIRIN
     Dosage: DURING 72 WEEKS
     Route: 065
     Dates: start: 200909
  7. PEGINTERFERON ALFA?2B [Suspect]
     Active Substance: PEGINTERFERON ALFA-2B
     Indication: HEPATITIS C
     Dosage: DURING 48 WEEKS
     Route: 065
     Dates: start: 200412
  8. PEGINTERFERON ALFA?2A. [Suspect]
     Active Substance: PEGINTERFERON ALFA-2A
     Indication: HEPATITIS C
     Dosage: DURING 72 WEEKS
     Route: 065
     Dates: start: 200909
  9. INTERFERON ALFA?2A [Suspect]
     Active Substance: INTERFERON ALFA-2A
     Route: 065
     Dates: start: 201208

REACTIONS (15)
  - Rash [Recovered/Resolved]
  - Skin reaction [Unknown]
  - Macule [Unknown]
  - Rash maculo-papular [Recovered/Resolved]
  - Oedema peripheral [Unknown]
  - Propionibacterium infection [Unknown]
  - Toxic skin eruption [Recovered/Resolved]
  - Drug ineffective [Unknown]
  - Escherichia bacteraemia [Unknown]
  - Papule [Unknown]
  - Swelling face [Unknown]
  - C-reactive protein increased [Unknown]
  - Pruritus [Unknown]
  - Leukopenia [Unknown]
  - Eosinophilia [Unknown]

NARRATIVE: CASE EVENT DATE: 201211
